FAERS Safety Report 4617505-0 (Version None)
Quarter: 2005Q1

REPORT INFORMATION
  Report Type: 
  Country: None (occurrence: None)
  Receive Date: 20050321
  Receipt Date: 20050307
  Transmission Date: 20050727
  Serious: Yes (Hospitalization)
  Sender: FDA-Public Use
  Company Number: B0374008A

PATIENT
  Age: 59 Year
  Sex: Male

DRUGS (4)
  1. LAMIVUDINE [Suspect]
     Indication: HEPATITIS B
     Dosage: 100 MG/PER DAY/ORAL
     Route: 048
  2. HEPATITIS B IMMUNOGLOBUL [Concomitant]
  3. CYCLOSPORINE [Concomitant]
  4. STEROID [Concomitant]

REACTIONS (6)
  - AZOTAEMIA [None]
  - DIALYSIS [None]
  - HAEMATURIA [None]
  - HYPERKALAEMIA [None]
  - RENAL IMPAIRMENT [None]
  - RHABDOMYOLYSIS [None]
